FAERS Safety Report 7052495-5 (Version None)
Quarter: 2010Q4

REPORT INFORMATION
  Report Type: 
  Country: None (occurrence: None)
  Receive Date: 20101014
  Receipt Date: 20101001
  Transmission Date: 20110411
  Serious: Yes (Hospitalization, Other)
  Sender: FDA-Public Use
  Company Number: 2010AC000528

PATIENT
  Age: 79 Year
  Sex: Male

DRUGS (12)
  1. DIGOXIN [Suspect]
     Dosage: 0.25 MG; QD; PO
     Route: 048
     Dates: start: 20080401
  2. DIGOXIN [Suspect]
     Dosage: 0.125 MG; QOD; PO
     Route: 048
     Dates: start: 20080501
  3. COUMADIN [Concomitant]
  4. ADVAIR DISKUS 100/50 [Concomitant]
  5. SPIRIVA [Concomitant]
  6. LASIX [Concomitant]
  7. LOVENOX [Concomitant]
  8. CARVEDILOL [Concomitant]
  9. NEXIUM [Concomitant]
  10. ALLOPURINOL [Concomitant]
  11. FLOMAX [Concomitant]
  12. AMLODIPINE [Concomitant]

REACTIONS (6)
  - BRADYCARDIA [None]
  - CARDIAC FAILURE CONGESTIVE [None]
  - DYSLIPIDAEMIA [None]
  - EPISTAXIS [None]
  - INTESTINAL MASS [None]
  - THERAPEUTIC AGENT TOXICITY [None]
